FAERS Safety Report 10351137 (Version 2)
Quarter: 2014Q3

REPORT INFORMATION
  Report Type: Spontaneous
  Country: US (occurrence: US)
  Receive Date: 20140730
  Receipt Date: 20140912
  Transmission Date: 20150326
  Serious: No
  Sender: FDA-Public Use
  Company Number: US-009507513-1407USA002336

PATIENT
  Age: 55 Year
  Sex: Female
  Weight: 102.4 kg

DRUGS (1)
  1. ASMANEX [Suspect]
     Active Substance: MOMETASONE FUROATE
     Indication: ASTHMA
     Dosage: 2 DF, BID,( 2 PUFFS TWICE DAILY, 880 MICROGRAM TOTAL DAILY DOSE)
     Route: 055
     Dates: start: 20140620, end: 20140623

REACTIONS (3)
  - No adverse event [Unknown]
  - Drug dose omission [Unknown]
  - Product container issue [Unknown]

NARRATIVE: CASE EVENT DATE: 20140620
